FAERS Safety Report 22392945 (Version 1)
Quarter: 2023Q2

REPORT INFORMATION
  Report Type: Spontaneous
  Country: US (occurrence: US)
  Receive Date: 20230601
  Receipt Date: 20230601
  Transmission Date: 20230721
  Serious: Yes (Other)
  Sender: FDA-Public Use
  Company Number: US-ROCHE-3301109

PATIENT
  Age: 40 Year
  Sex: Male

DRUGS (1)
  1. MYCOPHENOLATE MOFETIL [Suspect]
     Active Substance: MYCOPHENOLATE MOFETIL
     Indication: Immunosuppressant drug therapy

REACTIONS (3)
  - Oesophageal stenosis [Recovering/Resolving]
  - Erosive oesophagitis [Recovering/Resolving]
  - Oesophagitis ulcerative [Recovering/Resolving]
